FAERS Safety Report 15860611 (Version 1)
Quarter: 2019Q1

REPORT INFORMATION
  Report Type: Report from Study
  Country: BR (occurrence: BR)
  Receive Date: 20190123
  Receipt Date: 20190123
  Transmission Date: 20190417
  Serious: Yes (Hospitalization, Other)
  Sender: FDA-Public Use
  Company Number: PHHY2019BR012460

PATIENT
  Age: 84 Year
  Sex: Female

DRUGS (1)
  1. VITALUX PLUS OMEGA 03 (ALC) [Suspect]
     Active Substance: MINERALS\OMEGA-3 FATTY ACIDS\VITAMINS
     Indication: RETINAL DISORDER
     Route: 065

REACTIONS (11)
  - Dark circles under eyes [Recovered/Resolved with Sequelae]
  - Fall [Recovered/Resolved with Sequelae]
  - Constipation [Recovered/Resolved with Sequelae]
  - Muscle atrophy [Unknown]
  - Rhinitis [Not Recovered/Not Resolved]
  - Femur fracture [Unknown]
  - Diarrhoea [Recovered/Resolved]
  - Tibia fracture [Recovered/Resolved with Sequelae]
  - Mobility decreased [Unknown]
  - Product colour issue [Unknown]
  - Fall [Unknown]

NARRATIVE: CASE EVENT DATE: 20150228
